FAERS Safety Report 23522862 (Version 1)
Quarter: 2024Q1

REPORT INFORMATION
  Report Type: Spontaneous
  Country: BR (occurrence: BR)
  Receive Date: 20240214
  Receipt Date: 20240214
  Transmission Date: 20240410
  Serious: Yes (Hospitalization)
  Sender: FDA-Public Use
  Company Number: BR-GLAXOSMITHKLINE-BR2024AMR017283

PATIENT

DRUGS (1)
  1. ALBUTEROL [Suspect]
     Active Substance: ALBUTEROL
     Indication: Asthma
     Dosage: UNK

REACTIONS (1)
  - Asthma [Unknown]
